FAERS Safety Report 10542784 (Version 1)
Quarter: 2014Q4

REPORT INFORMATION
  Report Type: Spontaneous
  Country: US (occurrence: US)
  Receive Date: 20141027
  Receipt Date: 20141027
  Transmission Date: 20150529
  Serious: No
  Sender: FDA-Public Use
  Company Number: US-LEO PHARMA-229236

PATIENT
  Sex: Female

DRUGS (1)
  1. PICATO [Suspect]
     Active Substance: INGENOL MEBUTATE
     Indication: ACTINIC KERATOSIS
     Route: 061

REACTIONS (7)
  - Application site erythema [Recovered/Resolved]
  - Lip exfoliation [Recovered/Resolved with Sequelae]
  - Application site exfoliation [Recovered/Resolved]
  - Visual acuity reduced [Recovered/Resolved with Sequelae]
  - Drug administered at inappropriate site [Unknown]
  - Application site swelling [Recovered/Resolved]
  - Drug ineffective [Unknown]
